FAERS Safety Report 8613134-2 (Version None)
Quarter: 2012Q3

REPORT INFORMATION
  Report Type: 
  Country: None (occurrence: None)
  Receive Date: 20120822
  Receipt Date: 20120731
  Transmission Date: 20120928
  Serious: Yes (Hospitalization)
  Sender: FDA-Public Use
  Company Number: US-009507513-1208USA000566

PATIENT

DRUGS (4)
  1. TEMODAR [Suspect]
     Indication: ASTROCYTOMA
     Dosage: 100 MG, Q6H
     Route: 048
     Dates: start: 20120601, end: 20120101
  2. DEXILANT [Concomitant]
  3. EFFEXOR [Concomitant]
  4. KYTRIL [Concomitant]

REACTIONS (2)
  - MYALGIA [None]
  - TIC [None]
